FAERS Safety Report 16859924 (Version 1)
Quarter: 2019Q3

REPORT INFORMATION
  Report Type: Spontaneous
  Country: DK (occurrence: DK)
  Receive Date: 20190927
  Receipt Date: 20190927
  Transmission Date: 20191005
  Serious: Yes (Life-Threatening)
  Sender: FDA-Public Use
  Company Number: DK-ASTRAZENECA-2019SF35692

PATIENT
  Age: 70 Year
  Sex: Male
  Weight: 98 kg

DRUGS (2)
  1. METFORMIN ACTAVIS [Concomitant]
     Active Substance: METFORMIN HYDROCHLORIDE
     Indication: TYPE 2 DIABETES MELLITUS
     Dosage: STRENGTH: 500 MG
     Route: 048
     Dates: start: 20161201
  2. FORXIGA [Suspect]
     Active Substance: DAPAGLIFLOZIN
     Indication: TYPE 2 DIABETES MELLITUS
     Dosage: STRENGTH: 10MG
     Route: 048
     Dates: start: 20190617, end: 20190710

REACTIONS (2)
  - Transient ischaemic attack [Unknown]
  - International normalised ratio abnormal [Recovered/Resolved]

NARRATIVE: CASE EVENT DATE: 201907
